FAERS Safety Report 10430573 (Version 1)
Quarter: 2014Q3

REPORT INFORMATION
  Report Type: Report from Study
  Country: US (occurrence: US)
  Receive Date: 20140904
  Receipt Date: 20140904
  Transmission Date: 20150326
  Serious: Yes (Hospitalization)
  Sender: FDA-Public Use
  Company Number: US-ABBVIE-14P-163-1277870-00

PATIENT
  Age: 56 Year
  Sex: Female
  Weight: 70.82 kg

DRUGS (11)
  1. SINGULAIR [Concomitant]
     Active Substance: MONTELUKAST SODIUM
     Indication: SINUS POLYP
  2. PROTONIX [Concomitant]
     Active Substance: PANTOPRAZOLE SODIUM
     Indication: GASTROOESOPHAGEAL REFLUX DISEASE
  3. TRAMADOL [Concomitant]
     Active Substance: TRAMADOL
     Indication: PAIN
  4. HUMIRA [Suspect]
     Active Substance: ADALIMUMAB
     Indication: CROHN^S DISEASE
     Dates: start: 2013
  5. CELEXA [Concomitant]
     Active Substance: CITALOPRAM HYDROBROMIDE
     Indication: DEPRESSION
  6. XANAX [Concomitant]
     Active Substance: ALPRAZOLAM
     Indication: ANXIETY
  7. RHINOCORT AQUA [Concomitant]
     Active Substance: BUDESONIDE
     Indication: SINUS POLYP
  8. HYOSCYAMINE [Concomitant]
     Active Substance: HYOSCYAMINE
     Indication: BLADDER SPASM
  9. CELEXA [Concomitant]
     Active Substance: CITALOPRAM HYDROBROMIDE
     Indication: ANXIETY
  10. HYOSCYAMINE [Concomitant]
     Active Substance: HYOSCYAMINE
     Indication: VAGINISMUS
  11. HUMIRA [Suspect]
     Active Substance: ADALIMUMAB

REACTIONS (8)
  - Fractured coccyx [Recovering/Resolving]
  - Rectal discharge [Not Recovered/Not Resolved]
  - Wrist fracture [Recovering/Resolving]
  - Anxiety [Not Recovered/Not Resolved]
  - Intestinal polyp [Recovered/Resolved]
  - Crohn^s disease [Recovered/Resolved]
  - Proctalgia [Not Recovered/Not Resolved]
  - Fall [Recovered/Resolved]

NARRATIVE: CASE EVENT DATE: 2013
